FAERS Safety Report 9122847 (Version 1)
Quarter: 2013Q1

REPORT INFORMATION
  Report Type: Spontaneous
  Country: US (occurrence: None)
  Receive Date: 20130131
  Receipt Date: 20130131
  Transmission Date: 20140127
  Serious: Yes (Hospitalization)
  Sender: FDA-Public Use
  Company Number: 2013SUN00048

PATIENT
  Age: 68 Year
  Sex: Female

DRUGS (5)
  1. OXALIPLATIN (OXALIPLATIN) INJECTION [Suspect]
     Indication: COLON CANCER METASTATIC
  2. FLUOROUACIL (FLUOROUACIL) [Concomitant]
  3. FOLINIC ACID (LEUCOVORIN) [Concomitant]
  4. BEVACIZUMAB (BEVACIZUMAB) [Concomitant]
  5. IRINOTECAN (IRINOTECAN) [Concomitant]

REACTIONS (9)
  - Thrombotic thrombocytopenic purpura [None]
  - Chest pain [None]
  - Blood pressure systolic increased [None]
  - Confusional state [None]
  - Procedural haemorrhage [None]
  - Anaemia [None]
  - Haemolysis [None]
  - Haemodialysis [None]
  - Blood creatinine abnormal [None]
